FAERS Safety Report 6978757-5 (Version None)
Quarter: 2010Q3

REPORT INFORMATION
  Report Type: 
  Country: None (occurrence: None)
  Receive Date: 20100913
  Receipt Date: 20100908
  Transmission Date: 20110219
  Serious: Yes (Life-Threatening)
  Sender: FDA-Public Use
  Company Number: FR-ROCHE-725770

PATIENT
  Sex: Female

DRUGS (6)
  1. ROCEPHIN [Suspect]
     Route: 042
     Dates: end: 20100302
  2. RIVOTRIL [Suspect]
     Route: 042
     Dates: start: 20100224
  3. RIVOTRIL [Suspect]
     Route: 042
     Dates: start: 20100302, end: 20100302
  4. NEURONTIN [Suspect]
     Route: 048
     Dates: start: 20100226, end: 20100302
  5. TRAMADOL HCL [Suspect]
     Route: 065
     Dates: end: 20100302
  6. TRAMADOL HCL [Suspect]
     Route: 065
     Dates: start: 20100309

REACTIONS (1)
  - ENCEPHALOPATHY [None]
